FAERS Safety Report 7774733-3 (Version None)
Quarter: 2011Q3

REPORT INFORMATION
  Report Type: 
  Country: None (occurrence: None)
  Receive Date: 20110923
  Receipt Date: 20110919
  Transmission Date: 20111222
  Serious: Yes (Other)
  Sender: FDA-Public Use
  Company Number: CHPA2011US12624

PATIENT
  Age: 78 Year
  Sex: Female

DRUGS (1)
  1. BENEFIBER W/ WHEAT DEXTRIN [Suspect]
     Indication: CONSTIPATION
     Dosage: 2 TSP, TID
     Route: 048
     Dates: start: 20100101

REACTIONS (9)
  - FAECES DISCOLOURED [None]
  - SKIN CANCER [None]
  - DIARRHOEA [None]
  - OFF LABEL USE [None]
  - COLITIS [None]
  - GOUT [None]
  - MICROGRAPHIC SKIN SURGERY [None]
  - MICTURITION URGENCY [None]
  - THERAPEUTIC RESPONSE UNEXPECTED [None]
